FAERS Safety Report 6207282-4 (Version None)
Quarter: 2009Q2

REPORT INFORMATION
  Report Type: 
  Country: None (occurrence: None)
  Receive Date: 20090527
  Receipt Date: 20090527
  Transmission Date: 20091009
  Serious: Yes (Other)
  Sender: FDA-Public Use
  Company Number: None

PATIENT
  Age: 46 Year
  Sex: Female
  Weight: 57.1532 kg

DRUGS (1)
  1. DEPO-MEDROL [Suspect]
     Indication: BACK PAIN
     Dosage: 80MG EVERY 3 TO 4 MONTH EPIDURAL
     Route: 008
     Dates: start: 20081009, end: 20090514

REACTIONS (6)
  - ANOREXIA [None]
  - DIARRHOEA [None]
  - HUNGER [None]
  - MUSCULAR WEAKNESS [None]
  - VOMITING [None]
  - WEIGHT INCREASED [None]
